FAERS Safety Report 4295903-5 (Version None)
Quarter: 2004Q1

REPORT INFORMATION
  Report Type: 
  Country: None (occurrence: None)
  Receive Date: 20040212
  Receipt Date: 20031104
  Transmission Date: 20041129
  Serious: Yes (Life-Threatening)
  Sender: FDA-Public Use
  Company Number: APP200302021

PATIENT
  Age: 78 Year
  Sex: Male
  Weight: 68 kg

DRUGS (31)
  1. AMIODARONE HYDROCHLORIDE [Suspect]
     Indication: ATRIAL FIBRILLATION
     Dosage: 150 MG (ONCE), INTRAVENOUS; 1MG/MIN FOR 5 HOURS, INTRAVENOUS
     Route: 042
     Dates: start: 20030806, end: 20030806
  2. AMIODARONE HYDROCHLORIDE [Suspect]
     Indication: ATRIAL FIBRILLATION
     Dosage: 150 MG (ONCE), INTRAVENOUS; 1MG/MIN FOR 5 HOURS, INTRAVENOUS
     Route: 042
     Dates: start: 20030806, end: 20030807
  3. PROTAMINE SULFATE [Concomitant]
  4. METFORMIN HCL [Concomitant]
  5. METOPROLOL (METOPROLOL) [Concomitant]
  6. GLYBURIDE [Concomitant]
  7. ATORVASTATIN CALCIUM [Concomitant]
  8. MIDAZOLAM HCL [Concomitant]
  9. ASPIRIN [Concomitant]
  10. LOW POTASIUM CARDIOPLEGIA [Concomitant]
  11. CALCIUM CHLORIDE [Concomitant]
  12. PROPOFOL [Concomitant]
  13. FENTANYL [Concomitant]
  14. CISATRACURIUM (CISATRACURIUM) [Concomitant]
  15. CEFAZOLIN [Concomitant]
  16. NOREPINEPHRINE (NOREPINEPHRINE) [Concomitant]
  17. NITROGLYCERIN [Concomitant]
  18. INSULIN [Concomitant]
  19. HIGH POTASSIUM CARDIOPLEGIA [Concomitant]
  20. POTASSIUM CHLORIDE [Concomitant]
  21. HEPARIN [Concomitant]
  22. ALBUMIN (HUMAN) [Concomitant]
  23. MORPHINE [Concomitant]
  24. LORAZEPAM [Concomitant]
  25. SUCRALFATE [Concomitant]
  26. PAPAVERINE (PAPAVERINE) [Concomitant]
  27. LIDOCAINE [Concomitant]
  28. ESOMEPRAZOLE (ESOMEPRAZOLE) [Concomitant]
  29. OXYCODONE HYDROCHLORIDE WITH PARACETAMOL (OXYCOCET) [Concomitant]
  30. FUROSEMIDE [Concomitant]
  31. FOLIC ACID [Concomitant]

REACTIONS (1)
  - ATRIOVENTRICULAR BLOCK COMPLETE [None]
